FAERS Safety Report 9164286 (Version 1)
Quarter: 2013Q1

REPORT INFORMATION
  Report Type: Spontaneous
  Country: US (occurrence: None)
  Receive Date: 20130226
  Receipt Date: 20130226
  Transmission Date: 20140127
  Serious: Yes (Hospitalization)
  Sender: FDA-Public Use
  Company Number: DKLU1089006

PATIENT
  Age: 7 Month
  Sex: Female

DRUGS (2)
  1. SABRIL (FOR ORAL SOLUTION) (VIGABATRIN) (POWDER FOR ORAL SOLUTION) [Suspect]
     Indication: INFANTILE SPASMS
     Dates: start: 20110902
  2. ZONEGRAN (ZONISAMIDE) [Concomitant]

REACTIONS (1)
  - Brain neoplasm [None]
